FAERS Safety Report 4314232-4 (Version None)
Quarter: 2004Q1

REPORT INFORMATION
  Report Type: 
  Country: None (occurrence: None)
  Receive Date: 20040309
  Receipt Date: 20040309
  Transmission Date: 20041129
  Serious: Yes (Disabling)
  Sender: FDA-Public Use
  Company Number: None

PATIENT
  Age: 33 Year
  Sex: Male
  Weight: 117.9352 kg

DRUGS (1)
  1. DEPO-MEDROL [Suspect]
     Indication: ARACHNOIDITIS
     Dosage: EPIDURAL
     Route: 008
     Dates: start: 19970517, end: 19970517

REACTIONS (4)
  - ARACHNOIDITIS [None]
  - PAIN [None]
  - PERIPHERAL COLDNESS [None]
  - POLLAKIURIA [None]
